FAERS Safety Report 12370056 (Version 2)
Quarter: 2016Q2

REPORT INFORMATION
  Report Type: Spontaneous
  Country: IT (occurrence: IT)
  Receive Date: 20160516
  Receipt Date: 20160527
  Transmission Date: 20160815
  Serious: Yes (Other)
  Sender: FDA-Public Use
  Company Number: IT-TEVA-658668ACC

PATIENT
  Age: 43 Year
  Sex: Female

DRUGS (6)
  1. XANAX [Suspect]
     Active Substance: ALPRAZOLAM
     Indication: ANXIETY
     Dosage: A HALF TABLET DAILY
  2. PANTORC - TAKEDA ITALIA S.P.A. [Suspect]
     Active Substance: PANTOPRAZOLE SODIUM
     Indication: PRODUCT USED FOR UNKNOWN INDICATION
  3. EUTIROX - MERCK SERONO S.P.A. [Suspect]
     Active Substance: LEVOTHYROXINE SODIUM
     Indication: AUTOIMMUNE THYROIDITIS
  4. PANTORC - TAKEDA ITALIA S.P.A. [Suspect]
     Active Substance: PANTOPRAZOLE SODIUM
     Dosage: IN THE MORNING
  5. BISOPROLOL FUMARATE. [Suspect]
     Active Substance: BISOPROLOL FUMARATE
     Indication: VENTRICULAR EXTRASYSTOLES
     Dosage: 1.25 MG
  6. GAVISCON [Suspect]
     Active Substance: ALUMINUM HYDROXIDE\MAGNESIUM CARBONATE
     Indication: PRODUCT USED FOR UNKNOWN INDICATION
     Dosage: AFTER THE MEALS

REACTIONS (17)
  - Anaemia [Unknown]
  - Hyperchlorhydria [Unknown]
  - Dysentery [Unknown]
  - Dysgeusia [Unknown]
  - Dyspepsia [Unknown]
  - Salivary hypersecretion [Unknown]
  - Influenza [Unknown]
  - Glossitis [Unknown]
  - Throat irritation [Unknown]
  - Abdominal discomfort [Unknown]
  - Eructation [Unknown]
  - Pyrexia [Unknown]
  - Cough [Unknown]
  - Mucosal inflammation [Unknown]
  - Intestinal intraepithelial lymphocytes increased [Unknown]
  - Helicobacter test positive [Unknown]
  - Dizziness [Unknown]
